FAERS Safety Report 14254210 (Version 2)
Quarter: 2018Q1

REPORT INFORMATION
  Report Type: Spontaneous
  Country: CN (occurrence: CN)
  Receive Date: 20171206
  Receipt Date: 20180206
  Transmission Date: 20180508
  Serious: Yes (Hospitalization, Other)
  Sender: FDA-Public Use
  Company Number: CN-CONCORDIA PHARMACEUTICALS INC.-E2B_00008532

PATIENT
  Age: 48 Year
  Sex: Male
  Weight: 60 kg

DRUGS (2)
  1. PREDNISOLONE. [Suspect]
     Active Substance: PREDNISOLONE
     Indication: DRUG REACTION WITH EOSINOPHILIA AND SYSTEMIC SYMPTOMS
  2. PREDNISOLONE. [Suspect]
     Active Substance: PREDNISOLONE

REACTIONS (1)
  - Diabetic ketoacidosis [Recovered/Resolved]
